FAERS Safety Report 5912917-7 (Version None)
Quarter: 2008Q4

REPORT INFORMATION
  Report Type: 
  Country: None (occurrence: None)
  Receive Date: 20081008
  Receipt Date: 20080926
  Transmission Date: 20090506
  Serious: Yes (Other)
  Sender: FDA-Public Use
  Company Number: FR-PFIZER INC-2008069343

PATIENT
  Sex: Male
  Weight: 84 kg

DRUGS (4)
  1. LYRICA [Suspect]
     Indication: PAIN
     Route: 048
     Dates: start: 20080730, end: 20080815
  2. ACETAMINOPHEN [Concomitant]
     Dates: start: 20080101
  3. COVERSYL [Concomitant]
     Route: 048
     Dates: start: 20060101
  4. KARDEGIC [Concomitant]
     Route: 048
     Dates: start: 20060101

REACTIONS (3)
  - BLOOD CREATININE INCREASED [None]
  - CREATININE RENAL CLEARANCE INCREASED [None]
  - RHABDOMYOLYSIS [None]
